FAERS Safety Report 8788518 (Version 1)
Quarter: 2012Q4

REPORT INFORMATION
  Report Type: Report from Study
  Country: US (occurrence: US)
  Receive Date: 20120914
  Receipt Date: 20120914
  Transmission Date: 20130627
  Serious: Yes (Hospitalization)
  Sender: FDA-Public Use
  Company Number: US-VERTEX PHARMACEUTICAL INC.-AE-2012-006581

PATIENT
  Age: 56 Year
  Sex: Male
  Weight: 47.27 kg

DRUGS (5)
  1. VX-950 [Suspect]
     Indication: HEPATITIS C
     Dosage: 2 DF, tid
     Route: 048
     Dates: start: 20120315
  2. RIBAPAK [Concomitant]
     Indication: HEPATITIS C
     Dosage: UNK UNK, bid
     Route: 048
     Dates: start: 20120315
  3. PEGASYS [Concomitant]
     Indication: HEPATITIS C
     Dosage: 180 UNK, UNK
     Route: 058
     Dates: start: 20120315
  4. METOPROLOL [Concomitant]
  5. ZOLPIDEM [Concomitant]

REACTIONS (3)
  - Anaemia [Unknown]
  - Rash papular [Recovered/Resolved]
  - Pruritus [Unknown]
